FAERS Safety Report 8329869-5 (Version None)
Quarter: 2012Q2

REPORT INFORMATION
  Report Type: 
  Country: None (occurrence: None)
  Receive Date: 20120502
  Receipt Date: 20120421
  Transmission Date: 20120825
  Serious: Yes (Death)
  Sender: FDA-Public Use
  Company Number: CA-BRISTOL-MYERS SQUIBB COMPANY-16541997

PATIENT
  Age: 52 Year
  Sex: Male

DRUGS (4)
  1. TYLENOL W/ CODEINE NO. 3 [Concomitant]
     Dosage: TYLENOL # 3 TAB; HS
     Route: 048
     Dates: start: 20120321
  2. ALLOPURINOL [Concomitant]
     Route: 048
     Dates: start: 20120229
  3. IPILIMUMAB [Suspect]
     Indication: MALIGNANT MELANOMA
     Dosage: 01MAR2012-01MAR2012(288MG) 22MAR2012-22MAR2012(282MG) NO OF COURSES: 1
     Route: 042
     Dates: start: 20120301
  4. PREDNISONE [Concomitant]
     Route: 048
     Dates: start: 20120418

REACTIONS (1)
  - MULTI-ORGAN FAILURE [None]
